FAERS Safety Report 18126166 (Version 1)
Quarter: 2020Q3

REPORT INFORMATION
  Report Type: Spontaneous
  Country: FR (occurrence: FR)
  Receive Date: 20200808
  Receipt Date: 20200808
  Transmission Date: 20201103
  Serious: Yes (Hospitalization, Other)
  Sender: FDA-Public Use
  Company Number: FR-AUROBINDO-AUR-APL-2017-13908

PATIENT
  Age: 62 Year
  Sex: Female

DRUGS (5)
  1. BUDESONIDE. [Interacting]
     Active Substance: BUDESONIDE
     Indication: ASTHMA
     Dosage: 400 MICROGRAM, DAILY
     Route: 055
  2. ITRACONAZOLE. [Interacting]
     Active Substance: ITRACONAZOLE
     Indication: BRONCHOPULMONARY ASPERGILLOSIS
     Dosage: 200 MILLIGRAM, ONCE A DAY
     Route: 065
  3. PREDNISOLONE. [Interacting]
     Active Substance: PREDNISOLONE
     Indication: ASTHMA
     Dosage: 20 MILLIGRAM, ONCE A DAY
     Route: 048
  4. AMIODARONE [Suspect]
     Active Substance: AMIODARONE
     Indication: ARRHYTHMIA SUPRAVENTRICULAR
     Dosage: 200 MILLIGRAM, ONCE A DAY (5 DAYS/WEEK)
     Route: 065
     Dates: end: 2009
  5. PREDNISOLONE. [Interacting]
     Active Substance: PREDNISOLONE
     Indication: RESPIRATORY FAILURE

REACTIONS (10)
  - Hepatosplenomegaly [Unknown]
  - Hyperthyroidism [Unknown]
  - Cushing^s syndrome [Unknown]
  - Hyperglobulinaemia [Unknown]
  - Thyroiditis [Unknown]
  - Hepatic steatosis [Unknown]
  - Hepatocellular injury [Unknown]
  - Cholestasis [Unknown]
  - Potentiating drug interaction [Unknown]
  - Hypoalbuminaemia [Unknown]
